FAERS Safety Report 25088411 (Version 1)
Quarter: 2025Q1

REPORT INFORMATION
  Report Type: Spontaneous
  Country: US (occurrence: US)
  Receive Date: 20250318
  Receipt Date: 20250318
  Transmission Date: 20250408
  Serious: No
  Sender: SUNOVION
  Company Number: US-SMPA-2025SPA002061AA

PATIENT

DRUGS (9)
  1. ORGOVYX [Suspect]
     Active Substance: RELUGOLIX
     Indication: Prostate cancer
     Route: 048
  2. ORGOVYX [Suspect]
     Active Substance: RELUGOLIX
     Dosage: 120 MG, QD
     Route: 048
  3. METOPROLOL TARTRATE [Concomitant]
     Active Substance: METOPROLOL TARTRATE
     Route: 065
  4. PANTOPRAZOLE SODIUM [Concomitant]
     Active Substance: PANTOPRAZOLE SODIUM
     Route: 065
  5. GABAPENTIN [Concomitant]
     Active Substance: GABAPENTIN
     Route: 065
  6. RESTORIL [Concomitant]
     Active Substance: TEMAZEPAM
     Route: 065
  7. FLOMAX [Concomitant]
     Active Substance: TAMSULOSIN HYDROCHLORIDE
     Route: 065
  8. IRON [Concomitant]
     Active Substance: IRON
     Route: 065
  9. LORATADINE [Concomitant]
     Active Substance: LORATADINE
     Route: 065

REACTIONS (1)
  - Muscular weakness [Unknown]
